FAERS Safety Report 8531698-4 (Version None)
Quarter: 2012Q3

REPORT INFORMATION
  Report Type: 
  Country: None (occurrence: None)
  Receive Date: 20120723
  Receipt Date: 20120716
  Transmission Date: 20120928
  Serious: No
  Sender: FDA-Public Use
  Company Number: US-B.I. PHARMACEUTICALS,INC./RIDGEFIELD-2012-BP-15816BP

PATIENT
  Sex: Male

DRUGS (4)
  1. GUAIFENESIN [Concomitant]
     Indication: PRODUCTIVE COUGH
     Route: 048
  2. CEPHALEXIN [Concomitant]
     Indication: ANTIBIOTIC PROPHYLAXIS
     Route: 048
     Dates: start: 20120712
  3. SPIRIVA [Suspect]
     Indication: CHRONIC OBSTRUCTIVE PULMONARY DISEASE
     Dosage: 18 MCG
     Route: 055
     Dates: start: 20120710
  4. CORTISPORIN [Concomitant]
     Indication: EAR DISORDER
     Dates: start: 20120710

REACTIONS (2)
  - ACTIVITIES OF DAILY LIVING IMPAIRED [None]
  - PRODUCTIVE COUGH [None]
